FAERS Safety Report 8685550 (Version 2)
Quarter: 2015Q4

REPORT INFORMATION
  Report Type: Spontaneous
  Country: US (occurrence: US)
  Receive Date: 20120726
  Receipt Date: 20151105
  Transmission Date: 20160305
  Serious: No
  Sender: FDA-Public Use
  Company Number: US-ASTRAZENECA-2011SE55679

PATIENT
  Age: 48 Year
  Sex: Male

DRUGS (3)
  1. PAXIL [Concomitant]
     Active Substance: PAROXETINE HYDROCHLORIDE
  2. SEROQUEL XR [Suspect]
     Active Substance: QUETIAPINE FUMARATE
     Route: 048
  3. XANAX [Concomitant]
     Active Substance: ALPRAZOLAM

REACTIONS (12)
  - Benign prostatic hyperplasia [Unknown]
  - Radicular pain [Unknown]
  - Intentional product misuse [Unknown]
  - Radiculopathy [Unknown]
  - Lethargy [Unknown]
  - Back pain [Unknown]
  - Arthritis [Unknown]
  - Myositis [Unknown]
  - Anxiety [Unknown]
  - Osteoarthritis [Unknown]
  - Intervertebral disc protrusion [Unknown]
  - Pain [Unknown]

NARRATIVE: CASE EVENT DATE: 20141024
